FAERS Safety Report 25574254 (Version 2)
Quarter: 2025Q3

REPORT INFORMATION
  Report Type: Spontaneous
  Country: US (occurrence: US)
  Receive Date: 20250717
  Receipt Date: 20250808
  Transmission Date: 20251020
  Serious: No
  Sender: ASTELLAS
  Company Number: US-ASTELLAS-2025-AER-037805

PATIENT
  Sex: Female

DRUGS (2)
  1. VEOZAH [Suspect]
     Active Substance: FEZOLINETANT
     Indication: Hot flush
     Route: 048
     Dates: start: 2023
  2. VEOZAH [Suspect]
     Active Substance: FEZOLINETANT
     Indication: Hyperhidrosis

REACTIONS (1)
  - Hot flush [Not Recovered/Not Resolved]
